FAERS Safety Report 4854734-5 (Version None)
Quarter: 2005Q4

REPORT INFORMATION
  Report Type: 
  Country: None (occurrence: None)
  Receive Date: 20051215
  Receipt Date: 20051213
  Transmission Date: 20060501
  Serious: Yes (Hospitalization)
  Sender: FDA-Public Use
  Company Number: US-GLAXOSMITHKLINE-A0585690A

PATIENT
  Age: 61 Year
  Sex: Female

DRUGS (3)
  1. ZOFRAN [Suspect]
     Route: 042
  2. ANESTHESIA [Concomitant]
  3. TYLENOL [Concomitant]

REACTIONS (3)
  - CHEST PAIN [None]
  - DYSPNOEA [None]
  - NAUSEA [None]
